FAERS Safety Report 16649642 (Version 1)
Quarter: 2019Q3

REPORT INFORMATION
  Report Type: Spontaneous
  Country: FI (occurrence: FI)
  Receive Date: 20190730
  Receipt Date: 20190730
  Transmission Date: 20191004
  Serious: Yes (Hospitalization, Other)
  Sender: FDA-Public Use
  Company Number: FI-GILEAD-2019-0420951

PATIENT
  Age: 76 Year
  Sex: Male

DRUGS (6)
  1. ROSUVASTATIN KRKA [Concomitant]
     Indication: BLOOD CHOLESTEROL
     Dosage: 10,MG,DAILY
     Route: 048
  2. METOHEXAL COMP [Concomitant]
     Active Substance: METOPROLOL SUCCINATE
     Indication: ATRIAL FIBRILLATION
     Dosage: 47.5,MG,DAILY
     Route: 048
  3. ZYDELIG [Suspect]
     Active Substance: IDELALISIB
     Indication: CHRONIC LYMPHOCYTIC LEUKAEMIA
     Dosage: 300 MG, QD
     Route: 048
     Dates: start: 20190406
  4. MAREVAN [Concomitant]
     Active Substance: WARFARIN SODIUM
     Route: 048
  5. FURESIS [Concomitant]
     Active Substance: FUROSEMIDE
     Indication: DIURETIC THERAPY
     Dosage: 20,MG,DAILY
     Route: 048
  6. APURIN SANDOZ [Concomitant]
     Active Substance: ALLOPURINOL
     Indication: GOUT
     Dosage: 100,MG,DAILY
     Route: 048

REACTIONS (3)
  - Pulmonary haemorrhage [Not Recovered/Not Resolved]
  - Pneumonitis [Not Recovered/Not Resolved]
  - Pyrexia [Not Recovered/Not Resolved]

NARRATIVE: CASE EVENT DATE: 20190530
